FAERS Safety Report 23545691 (Version 1)
Quarter: 2024Q1

REPORT INFORMATION
  Report Type: Spontaneous
  Country: US (occurrence: US)
  Receive Date: 20240220
  Receipt Date: 20240220
  Transmission Date: 20240410
  Serious: No
  Sender: FDA-Public Use
  Company Number: US-PFIZER INC-202400043044

PATIENT
  Sex: Female

DRUGS (4)
  1. LINEZOLID [Suspect]
     Active Substance: LINEZOLID
     Indication: Pathogen resistance
     Dosage: UNK
     Route: 048
  2. LINEZOLID [Suspect]
     Active Substance: LINEZOLID
     Indication: Mycobacterium abscessus infection
  3. NUZYRA [Suspect]
     Active Substance: OMADACYCLINE
     Indication: Mycobacterium abscessus infection
     Dosage: 150 MG
     Route: 048
  4. NUZYRA [Suspect]
     Active Substance: OMADACYCLINE
     Indication: Pathogen resistance

REACTIONS (4)
  - Vulvovaginal candidiasis [Unknown]
  - Autoscopy [Recovered/Resolved]
  - Confusional state [Recovered/Resolved]
  - Off label use [Unknown]
